FAERS Safety Report 8076615-9 (Version None)
Quarter: 2012Q1

REPORT INFORMATION
  Report Type: 
  Country: None (occurrence: None)
  Receive Date: 20120127
  Receipt Date: 20120119
  Transmission Date: 20120608
  Serious: Yes (Other)
  Sender: FDA-Public Use
  Company Number: US-JNJFOC-20120109001

PATIENT

DRUGS (1)
  1. XARELTO [Suspect]
     Indication: SURGERY
     Route: 048

REACTIONS (1)
  - PULMONARY EMBOLISM [None]
